FAERS Safety Report 4576579-6 (Version None)
Quarter: 2005Q1

REPORT INFORMATION
  Report Type: 
  Country: None (occurrence: None)
  Receive Date: 20050119
  Receipt Date: 20040927
  Transmission Date: 20050727
  Serious: Yes (Other)
  Sender: FDA-Public Use
  Company Number: A03200403318

PATIENT
  Age: 69 Year
  Sex: Male
  Weight: 78.4723 kg

DRUGS (4)
  1. PLAVIX [Suspect]
     Indication: ISCHAEMIC STROKE
     Dosage: 75 MG QD - ORAL
     Route: 048
     Dates: start: 19980601
  2. LSINOPRIL [Concomitant]
  3. INSULIN GLARGINE [Concomitant]
  4. BUPROPION HYDROCHLORIDE [Concomitant]

REACTIONS (3)
  - BLINDNESS TRANSIENT [None]
  - DRUG INEFFECTIVE [None]
  - TRANSIENT ISCHAEMIC ATTACK [None]
